FAERS Safety Report 19046781 (Version 1)
Quarter: 2021Q1

REPORT INFORMATION
  Report Type: Spontaneous
  Country: CN (occurrence: CN)
  Receive Date: 20210322
  Receipt Date: 20210322
  Transmission Date: 20210420
  Serious: Yes (Other)
  Sender: FDA-Public Use
  Company Number: CN-BAXTER-2021BAX005314

PATIENT
  Age: 3 Year
  Sex: Female
  Weight: 16 kg

DRUGS (12)
  1. 0.9% SODIUM CHLORIDE INJECTION [Suspect]
     Active Substance: SODIUM CHLORIDE
     Dosage: VINCRISTINE+ 0.9% NS
     Route: 042
  2. 0.9% SODIUM CHLORIDE INJECTION [Suspect]
     Active Substance: SODIUM CHLORIDE
     Dosage: EPIRUBICIN HYDROCHLORIDE 15 MG + 0.9% NS 100 ML
     Route: 041
     Dates: start: 20210222, end: 20210224
  3. 0.9% SODIUM CHLORIDE INJECTION [Suspect]
     Active Substance: SODIUM CHLORIDE
     Dosage: EPIRUBICIN + 0.9% NS
     Route: 041
  4. 0.9% SODIUM CHLORIDE INJECTION [Suspect]
     Active Substance: SODIUM CHLORIDE
     Dosage: CYCLOPHOSPHAMIDE 1 G + 0.9% NS 250 ML
     Route: 041
     Dates: start: 20210222, end: 20210223
  5. 0.9% SODIUM CHLORIDE INJECTION [Suspect]
     Active Substance: SODIUM CHLORIDE
     Dosage: VINCRISTINE 0.4 MG + 0.9% NS 20 ML
     Route: 042
     Dates: start: 20210222, end: 20210224
  6. EPIRUBICIN HYDROCHLORIDE. [Suspect]
     Active Substance: EPIRUBICIN HYDROCHLORIDE
     Dosage: EPIRUBICIN HYDROCHLORIDE 15 MG + 0.9% NS 100 ML
     Route: 041
     Dates: start: 20210222, end: 20210224
  7. 0.9% SODIUM CHLORIDE INJECTION [Suspect]
     Active Substance: SODIUM CHLORIDE
     Indication: MEDICATION DILUTION
     Dosage: CYCLOPHOSPHAMIDE + 0.9% NS
     Route: 041
  8. VINCRISTINE [Suspect]
     Active Substance: VINCRISTINE
     Indication: NEUROBLASTOMA
     Dosage: DOSAGE FORM: LYOPHILIZED PREPARATION; VINCRISTINE + 0.9% NS
     Route: 042
  9. ENDOXAN [Suspect]
     Active Substance: CYCLOPHOSPHAMIDE
     Indication: NEUROBLASTOMA
     Dosage: CYCLOPHOSPHAMIDE + 0.9% NS
     Route: 041
  10. ENDOXAN [Suspect]
     Active Substance: CYCLOPHOSPHAMIDE
     Dosage: CYCLOPHOSPHAMIDE 1 G + 0.9% NS 250 ML
     Route: 041
     Dates: start: 20210222, end: 20210223
  11. EPIRUBICIN HYDROCHLORIDE. [Suspect]
     Active Substance: EPIRUBICIN HYDROCHLORIDE
     Indication: NEUROBLASTOMA
     Dosage: EPIRUBICIN HYDROCHLORIDE + 0.9% NS
     Route: 041
  12. VINCRISTINE [Suspect]
     Active Substance: VINCRISTINE
     Dosage: DOSAGE FORM: LYOPHILIZED PREPARATION; VINCRISTINE 0.4 MG + 0.9% NS 20 ML
     Route: 042
     Dates: start: 20210222, end: 20210224

REACTIONS (1)
  - Vomiting [Recovering/Resolving]

NARRATIVE: CASE EVENT DATE: 20210222
